FAERS Safety Report 4299717-1 (Version None)
Quarter: 2004Q1

REPORT INFORMATION
  Report Type: 
  Country: None (occurrence: None)
  Receive Date: 20040219
  Receipt Date: 20031027
  Transmission Date: 20041129
  Serious: Yes (Hospitalization)
  Sender: FDA-Public Use
  Company Number: DE-BRISTOL-MYERS SQUIBB COMPANY-12419339

PATIENT
  Age: 72 Year
  Sex: Male
  Weight: 75 kg

DRUGS (12)
  1. PACLITAXEL [Suspect]
     Indication: BRONCHIAL CARCINOMA
     Route: 042
     Dates: start: 20030811, end: 20030811
  2. CISPLATIN [Suspect]
     Indication: BRONCHIAL CARCINOMA
     Route: 042
     Dates: start: 20030812, end: 20030812
  3. IRENAT [Concomitant]
     Route: 048
  4. TOREM [Concomitant]
     Route: 048
  5. PASPERTIN [Concomitant]
     Route: 048
  6. BELOC-ZOK [Concomitant]
     Route: 048
  7. ASPIRIN [Concomitant]
     Route: 048
  8. SPIRIVA [Concomitant]
     Route: 048
  9. VESDIL [Concomitant]
     Route: 048
  10. PANTOZOL [Concomitant]
     Route: 048
  11. OMNIC [Concomitant]
     Route: 048
  12. SORTIS [Concomitant]
     Route: 048

REACTIONS (7)
  - ASTHENIA [None]
  - DIARRHOEA [None]
  - HYPOVOLAEMIA [None]
  - MARKEDLY REDUCED DIETARY INTAKE [None]
  - NAUSEA [None]
  - SYNCOPE [None]
  - VOMITING [None]
